FAERS Safety Report 8036236-0 (Version None)
Quarter: 2011Q4

REPORT INFORMATION
  Report Type: 
  Country: None (occurrence: None)
  Receive Date: 20111202
  Receipt Date: 20110922
  Transmission Date: 20120403
  Serious: No
  Sender: FDA-Public Use
  Company Number: PHEH2011US05073

PATIENT
  Sex: Male

DRUGS (1)
  1. FANAPT [Suspect]
     Indication: SCHIZOPHRENIA
     Dosage: 4 MG, BID, ORAL
     Route: 048

REACTIONS (2)
  - VOMITING [None]
  - NAUSEA [None]
